FAERS Safety Report 6318330-5 (Version None)
Quarter: 2009Q3

REPORT INFORMATION
  Report Type: 
  Country: None (occurrence: None)
  Receive Date: 20090821
  Receipt Date: 20090811
  Transmission Date: 20100115
  Serious: Yes (Other)
  Sender: FDA-Public Use
  Company Number: IT-PFIZER INC-2009253700

PATIENT
  Age: 62 Year

DRUGS (2)
  1. LYRICA [Suspect]
     Indication: PAIN
     Dosage: 75 MG, 1X/DAY
  2. GABAPENTIN [Suspect]
     Indication: PAIN
     Dosage: 1200 MG, 1X/DAY

REACTIONS (2)
  - DELIRIUM [None]
  - DRUG INEFFECTIVE FOR UNAPPROVED INDICATION [None]
